FAERS Safety Report 4312010-3 (Version None)
Quarter: 2004Q1

REPORT INFORMATION
  Report Type: 
  Country: None (occurrence: None)
  Receive Date: 20040303
  Receipt Date: 20040219
  Transmission Date: 20041129
  Serious: Yes (Other)
  Sender: FDA-Public Use
  Company Number: DE-SHR-03-017426

PATIENT
  Age: 47 Year
  Sex: Male
  Weight: 55 kg

DRUGS (6)
  1. BETAFERON (INTERFERON BETA-1B)INJECTION [Suspect]
     Indication: MULTIPLE SCLEROSIS
     Dosage: 8 MIU, SUBCUTANEOUS; 8 MIU, SUBCUTANEOUS
     Route: 058
     Dates: start: 20030801, end: 20031101
  2. BETAFERON (INTERFERON BETA-1B)INJECTION [Suspect]
     Indication: MULTIPLE SCLEROSIS
     Dosage: 8 MIU, SUBCUTANEOUS; 8 MIU, SUBCUTANEOUS
     Route: 058
     Dates: start: 19950701
  3. LIORESAL ^NOVARTIS^ [Concomitant]
  4. UROTRACTAN (METHENAMINE HIPPURATE) [Concomitant]
  5. ACIMETHIN (METHIONINE) [Concomitant]
  6. MULSAL (BROMELAINS, PAPAIN, TRYPSIN) [Concomitant]

REACTIONS (20)
  - ALOPECIA [None]
  - CARDIOVASCULAR DISORDER [None]
  - CHILLS [None]
  - CONDITION AGGRAVATED [None]
  - DYSPHAGIA [None]
  - DYSPNOEA [None]
  - ERYTHEMA [None]
  - FACE OEDEMA [None]
  - HAIR GROWTH ABNORMAL [None]
  - INFLUENZA LIKE ILLNESS [None]
  - INJECTION SITE INDURATION [None]
  - MULTIPLE SCLEROSIS [None]
  - MUSCLE SPASTICITY [None]
  - MUSCULOSKELETAL STIFFNESS [None]
  - NAUSEA [None]
  - NECK PAIN [None]
  - PYREXIA [None]
  - RASH MACULAR [None]
  - SWELLING FACE [None]
  - TACHYCARDIA [None]
